FAERS Safety Report 5050537-X (Version None)
Quarter: 2006Q3

REPORT INFORMATION
  Report Type: 
  Country: None (occurrence: None)
  Receive Date: 20060707
  Receipt Date: 20060629
  Transmission Date: 20061208
  Serious: Yes (Hospitalization)
  Sender: FDA-Public Use
  Company Number: FRWYE134716MAY03

PATIENT
  Age: 53 Year
  Sex: Female

DRUGS (5)
  1. RAPAMUNE [Suspect]
     Indication: PROPHYLAXIS AGAINST TRANSPLANT REJECTION
     Dosage: SEE IMAGE
     Route: 048
     Dates: start: 20030109, end: 20030127
  2. RAPAMUNE [Suspect]
     Indication: PROPHYLAXIS AGAINST TRANSPLANT REJECTION
     Dosage: SEE IMAGE
     Route: 048
     Dates: start: 20030128
  3. ANTITHYMOCYTE IMMUNOGLOBULIN (ANTITHYMOCYTE IMMUNOGLOBULIN, , 0) [Suspect]
     Indication: PROPHYLAXIS AGAINST TRANSPLANT REJECTION
     Route: 042
     Dates: start: 20030109, end: 20030115
  4. MYCOPHENOLATE MOFETIL [Suspect]
     Indication: PROPHYLAXIS AGAINST TRANSPLANT REJECTION
     Route: 048
     Dates: start: 20030109
  5. SOLU-MEDROL [Suspect]
     Route: 048
     Dates: start: 20030109

REACTIONS (3)
  - CHRONIC ALLOGRAFT NEPHROPATHY [None]
  - HAEMODIALYSIS [None]
  - KIDNEY TRANSPLANT REJECTION [None]
